FAERS Safety Report 8493731-8 (Version None)
Quarter: 2012Q3

REPORT INFORMATION
  Report Type: 
  Country: None (occurrence: None)
  Receive Date: 20120706
  Receipt Date: 20120621
  Transmission Date: 20120928
  Serious: Yes (Other)
  Sender: FDA-Public Use
  Company Number: CHPA2012US013637

PATIENT
  Sex: Female

DRUGS (1)
  1. EXCEDRIN PM CAPLETS [Suspect]
     Indication: HEADACHE
     Dosage: UNK, UNK
     Route: 048

REACTIONS (2)
  - BRAIN NEOPLASM [None]
  - OFF LABEL USE [None]
